FAERS Safety Report 21712185 (Version 1)
Quarter: 2022Q4

REPORT INFORMATION
  Report Type: Spontaneous
  Country: US (occurrence: US)
  Receive Date: 20221212
  Receipt Date: 20221212
  Transmission Date: 20230113
  Serious: No
  Sender: FDA-Public Use
  Company Number: US-ORG100016242-2022000748

PATIENT
  Age: 61 Year
  Sex: Male
  Weight: 85 kg

DRUGS (10)
  1. EXPAREL [Suspect]
     Active Substance: BUPIVACAINE
     Indication: Haemorrhoid operation
     Route: 050
     Dates: start: 20211202
  2. MARCAINE [Suspect]
     Active Substance: BUPIVACAINE HYDROCHLORIDE
     Indication: Nerve block
  3. PRIMIDONE [Concomitant]
     Active Substance: PRIMIDONE
     Indication: Tremor
     Route: 048
  4. LISINOPRIL [Concomitant]
     Active Substance: LISINOPRIL
     Indication: Hypertension
     Route: 048
  5. ATORVASTATIN [Concomitant]
     Active Substance: ATORVASTATIN
     Indication: Blood cholesterol increased
     Route: 048
  6. ALLOPURINOL [Concomitant]
     Active Substance: ALLOPURINOL
     Indication: Gout
     Route: 048
  7. PROPRANOLOL [Concomitant]
     Active Substance: PROPRANOLOL HYDROCHLORIDE
     Indication: Hypertension
     Route: 048
  8. MELOXICAM [Concomitant]
     Active Substance: MELOXICAM
     Indication: Inflammation
     Route: 048
  9. PROPOFOL [Concomitant]
     Active Substance: PROPOFOL
     Indication: Anaesthesia
     Dosage: NOT PROVIDED
  10. SEVOFLURANE [Concomitant]
     Active Substance: SEVOFLURANE
     Indication: Anaesthesia
     Dosage: NOT PROVIDED

REACTIONS (2)
  - Urinary retention postoperative [Recovered/Resolved]
  - Labelled drug-drug interaction medication error [Unknown]

NARRATIVE: CASE EVENT DATE: 20211202
